FAERS Safety Report 9396294 (Version 2)
Quarter: 2014Q2

REPORT INFORMATION
  Report Type: Spontaneous
  Country: IT (occurrence: IT)
  Receive Date: 20130711
  Receipt Date: 20140415
  Transmission Date: 20141212
  Serious: Yes (Other)
  Sender: FDA-Public Use
  Company Number: IT-NICOBRDEVP-2013-10766

PATIENT
  Age: 79 Year
  Sex: Female
  Weight: 54 kg

DRUGS (2)
  1. QUETIAPINE (UNKNOWN) [Suspect]
     Indication: DEMENTIA OF THE ALZHEIMER^S TYPE, WITH DELIRIUM
     Dosage: 50 MG, DAILY
     Route: 048
     Dates: start: 20130512, end: 20130518
  2. EBIXA [Concomitant]
     Indication: PRODUCT USED FOR UNKNOWN INDICATION
     Dosage: 20 MG, UNK
     Route: 048
     Dates: start: 20130410, end: 20130523

REACTIONS (4)
  - Delusion [Recovered/Resolved]
  - Product substitution issue [Recovered/Resolved]
  - No therapeutic response [Recovered/Resolved]
  - Drug ineffective [Recovered/Resolved]
